FAERS Safety Report 7075135-8 (Version None)
Quarter: 2010Q4

REPORT INFORMATION
  Report Type: 
  Country: None (occurrence: None)
  Receive Date: 20101029
  Receipt Date: 20100329
  Transmission Date: 20110411
  Serious: No
  Sender: FDA-Public Use
  Company Number: US-WYE-H14462510

PATIENT
  Sex: Female

DRUGS (1)
  1. ADVIL PM [Suspect]
     Indication: TOOTHACHE
     Dosage: 1 OR 2 CAPLETS
     Route: 048
     Dates: start: 20090101

REACTIONS (3)
  - DISORIENTATION [None]
  - DIZZINESS [None]
  - FEAR [None]
